FAERS Safety Report 5999860-2 (Version None)
Quarter: 2008Q4

REPORT INFORMATION
  Report Type: 
  Country: None (occurrence: None)
  Receive Date: 20081215
  Receipt Date: 20081209
  Transmission Date: 20090506
  Serious: Yes (Hospitalization)
  Sender: FDA-Public Use
  Company Number: US-JNJFOC-20081202863

PATIENT
  Sex: Male
  Weight: 89.81 kg

DRUGS (5)
  1. LEVAQUIN [Suspect]
     Indication: PNEUMONIA
     Route: 048
  2. SIMVASTATIN [Concomitant]
     Route: 065
  3. PROSCAR [Concomitant]
     Route: 065
  4. HYTRIN [Concomitant]
     Route: 065
  5. DILTRAZEN [Concomitant]
     Route: 065

REACTIONS (3)
  - BLOOD PRESSURE DECREASED [None]
  - DYSPNOEA [None]
  - SWELLING FACE [None]
